FAERS Safety Report 8369706-6 (Version None)
Quarter: 2012Q2

REPORT INFORMATION
  Report Type: 
  Country: None (occurrence: None)
  Receive Date: 20120518
  Receipt Date: 20120511
  Transmission Date: 20120825
  Serious: Yes (Other)
  Sender: FDA-Public Use
  Company Number: US-BRISTOL-MYERS SQUIBB COMPANY-16587263

PATIENT
  Age: 69 Year
  Sex: Female
  Weight: 60 kg

DRUGS (1)
  1. COUMADIN [Suspect]
     Indication: CARDIAC VALVE DISEASE
     Dosage: RX#: 1160884-03774

REACTIONS (6)
  - BUNION [None]
  - UPPER LIMB FRACTURE [None]
  - MUSCULOSKELETAL PAIN [None]
  - TENDONITIS [None]
  - ARTHRALGIA [None]
  - BURSITIS [None]
